FAERS Safety Report 8265519-4 (Version None)
Quarter: 2012Q2

REPORT INFORMATION
  Report Type: 
  Country: None (occurrence: None)
  Receive Date: 20120406
  Receipt Date: 20120403
  Transmission Date: 20120825
  Serious: Yes (Other)
  Sender: FDA-Public Use
  Company Number: US-PFIZER INC-2012084071

PATIENT
  Sex: Female
  Weight: 58.957 kg

DRUGS (2)
  1. EFFEXOR XR [Suspect]
     Indication: ANXIETY
  2. EFFEXOR XR [Suspect]
     Indication: DEPRESSION
     Dosage: 75 MG, DAILY
     Route: 048
     Dates: start: 20120201, end: 20120329

REACTIONS (5)
  - FEMALE SEXUAL AROUSAL DISORDER [None]
  - DIARRHOEA [None]
  - FATIGUE [None]
  - NAUSEA [None]
  - ASTHENIA [None]
